FAERS Safety Report 6845311-5 (Version None)
Quarter: 2010Q3

REPORT INFORMATION
  Report Type: 
  Country: None (occurrence: None)
  Receive Date: 20100715
  Receipt Date: 20070817
  Transmission Date: 20110219
  Serious: No
  Sender: FDA-Public Use
  Company Number: US-PFIZER INC-2007070154

PATIENT
  Sex: Female
  Weight: 61.2 kg

DRUGS (11)
  1. CHANTIX [Suspect]
     Indication: SMOKING CESSATION THERAPY
     Route: 048
     Dates: start: 20070712
  2. HYDROCODONE [Concomitant]
     Dosage: 10MG/500MG
  3. UNIPHYL [Concomitant]
  4. NEXIUM [Concomitant]
     Dates: end: 20070101
  5. PROTONIX [Concomitant]
     Dates: start: 20070101
  6. METOCLOPRAMIDE [Concomitant]
  7. FUROSEMIDE [Concomitant]
  8. FENTANYL [Concomitant]
     Route: 062
  9. METHYLPREDNISOLONE [Concomitant]
  10. LIDODERM [Concomitant]
     Route: 062
  11. MULTI-VITAMINS [Concomitant]

REACTIONS (5)
  - DYSGEUSIA [None]
  - INAPPROPRIATE SCHEDULE OF DRUG ADMINISTRATION [None]
  - NAUSEA [None]
  - NIGHTMARE [None]
  - WEIGHT DECREASED [None]
